FAERS Safety Report 18637021 (Version 7)
Quarter: 2022Q3

REPORT INFORMATION
  Report Type: Spontaneous
  Country: CZ (occurrence: CZ)
  Receive Date: 20201219
  Receipt Date: 20220817
  Transmission Date: 20221027
  Serious: Yes (Hospitalization, Disabling, Other)
  Sender: FDA-Public Use
  Company Number: CZ-GLAXOSMITHKLINE-CZ2020GSK241434

PATIENT
  Age: 96 Year
  Sex: Female

DRUGS (44)
  1. AMLODIPINE [Suspect]
     Active Substance: AMLODIPINE BESYLATE
     Indication: Product used for unknown indication
     Dosage: UNK UNK, ONCE A DAY
     Route: 065
  2. METOPROLOL [Suspect]
     Active Substance: METOPROLOL
     Indication: Product used for unknown indication
     Dosage: 25 MILLIGRAM, ONCE A DAY
     Route: 065
  3. PANTOPRAZOLE SODIUM [Suspect]
     Active Substance: PANTOPRAZOLE SODIUM
     Indication: Product used for unknown indication
     Dosage: UNK, ONCE A DAY
     Route: 065
  4. ROSUVASTATIN CALCIUM [Suspect]
     Active Substance: ROSUVASTATIN CALCIUM
     Indication: Product used for unknown indication
     Dosage: 20 MILLIGRAM, ONCE A DAY
     Route: 065
  5. OMEPRAZOLE [Suspect]
     Active Substance: OMEPRAZOLE
     Indication: Product used for unknown indication
     Dosage: UNK
     Route: 065
  6. DONEPEZIL [Suspect]
     Active Substance: DONEPEZIL
     Indication: Product used for unknown indication
     Dosage: UNK
     Route: 065
  7. RAMIPRIL [Suspect]
     Active Substance: RAMIPRIL
     Indication: Product used for unknown indication
     Route: 065
  8. PREGABALIN [Suspect]
     Active Substance: PREGABALIN
     Indication: Product used for unknown indication
     Dosage: UNK
     Route: 065
  9. TRAMADOL [Suspect]
     Active Substance: TRAMADOL
     Indication: Pain
     Dosage: UNK
     Route: 065
  10. FOLIC ACID [Suspect]
     Active Substance: FOLIC ACID
     Indication: Product used for unknown indication
     Dosage: UNK UNK, ONCE A DAY
     Route: 065
  11. AMLODIPINE BESYLATE [Suspect]
     Active Substance: AMLODIPINE BESYLATE
     Indication: Product used for unknown indication
     Dosage: 5 MILLIGRAM, ONCE A DAY
     Route: 065
  12. METOPROLOL [Suspect]
     Active Substance: METOPROLOL
     Indication: Product used for unknown indication
     Dosage: 25 MILLIGRAM, ONCE A DAY
     Route: 065
  13. METOPROLOL SUCCINATE [Suspect]
     Active Substance: METOPROLOL SUCCINATE
     Indication: Product used for unknown indication
     Dosage: 25 MILLIGRAM, ONCE A DAY
     Route: 065
  14. CALCIUM\CHOLECALCIFEROL [Suspect]
     Active Substance: CALCIUM\CHOLECALCIFEROL
     Indication: Product used for unknown indication
     Dosage: UNK
     Route: 065
  15. MAGNESIUM ASPARTATE\POTASSIUM ASPARTATE [Suspect]
     Active Substance: MAGNESIUM ASPARTATE\POTASSIUM ASPARTATE
     Indication: Product used for unknown indication
     Dosage: UNK
     Route: 065
  16. SODIUM CHONDROITIN SULFATE [Suspect]
     Active Substance: SODIUM CHONDROITIN SULFATE
     Indication: Product used for unknown indication
     Dosage: 800 MILLIGRAM, ONCE A DAY
     Route: 065
  17. CONTROLOC [Suspect]
     Active Substance: PANTOPRAZOLE SODIUM
     Indication: Product used for unknown indication
     Dosage: 1.5 DOSAGE FORM 3-4 TIMES A DAY
     Route: 065
  18. CORDARONE [Suspect]
     Active Substance: AMIODARONE HYDROCHLORIDE
     Indication: Product used for unknown indication
     Dosage: 200 MILLIGRAM, ONCE A DAY
     Route: 065
  19. FENTANYL [Suspect]
     Active Substance: FENTANYL
     Indication: Post herpetic neuralgia
     Dosage: 75 MICROGRAM, PER EVERY 3 DAYS (72 HRS
     Route: 065
  20. FENTANYL [Suspect]
     Active Substance: FENTANYL
     Dosage: 25 MICROGRAM, EVERY 72 HOURS
     Route: 062
     Dates: start: 2015
  21. FENTANYL [Suspect]
     Active Substance: FENTANYL
     Dosage: DOSE REDUCED TO ONE HALF
     Route: 065
  22. EUTHYROX [Suspect]
     Active Substance: LEVOTHYROXINE SODIUM
     Indication: Autoimmune thyroiditis
     Dosage: 100 MICROGRAM, ONCE A DAY
     Route: 065
  23. EUTHYROX [Suspect]
     Active Substance: LEVOTHYROXINE SODIUM
     Dosage: UNK (DOSE REDUCED)
     Route: 065
  24. ELIQUIS [Suspect]
     Active Substance: APIXABAN
     Indication: Product used for unknown indication
     Dosage: 5 MILLIGRAM, ONCE A DAY
     Route: 065
  25. ELIQUIS [Suspect]
     Active Substance: APIXABAN
     Dosage: 5 MILLIGRAM, TWO TIMES A DAY
     Route: 065
  26. SODIUM PICOSULFATE [Suspect]
     Active Substance: SODIUM PICOSULFATE
     Indication: Constipation
     Dosage: 10-20 DROPS (TAKEN DAILY IN THE EVENING)
     Route: 065
  27. ZOLPIDEM TARTRATE [Suspect]
     Active Substance: ZOLPIDEM TARTRATE
     Indication: Insomnia
     Dosage: UNK
     Route: 065
  28. IBUPROFEN [Suspect]
     Active Substance: IBUPROFEN
     Indication: Analgesic intervention supportive therapy
     Dosage: UNK
     Route: 065
  29. IBUPROFEN [Suspect]
     Active Substance: IBUPROFEN
     Indication: Pain
  30. LEVOTHYROXINE SODIUM [Suspect]
     Active Substance: LEVOTHYROXINE SODIUM
     Indication: Product used for unknown indication
     Dosage: UNK UNK, ONCE A DAY FASTING, EXCEPT SUNDAYS
     Route: 065
  31. METAMIZOLE [Suspect]
     Active Substance: METAMIZOLE
     Indication: Post herpetic neuralgia
     Dosage: UNK
     Route: 065
  32. METHOTREXATE [Suspect]
     Active Substance: METHOTREXATE
     Indication: Rheumatoid arthritis
     Dosage: 10 MILLIGRAM, EVERY WEEK
     Route: 065
     Dates: start: 2010
  33. METAMIZOLE [Suspect]
     Active Substance: METAMIZOLE
     Indication: Product used for unknown indication
     Dosage: 500 MILLIGRAM, TWO TIMES A DAY
     Route: 065
  34. OXAZEPAM [Suspect]
     Active Substance: OXAZEPAM
     Indication: Anxiety
     Dosage: UNK
     Route: 065
  35. MELOXICAM [Suspect]
     Active Substance: MELOXICAM
     Indication: Post herpetic neuralgia
     Dosage: 1 DOSAGE FORM, EVERY WEEK
     Route: 065
     Dates: start: 2015
  36. MELOXICAM [Suspect]
     Active Substance: MELOXICAM
     Indication: Pain
  37. PANADOL [Suspect]
     Active Substance: ACETAMINOPHEN
     Indication: Pain
     Dosage: 1.5 DOSAGE FORM, 3-4 TIMES A DAY
     Route: 065
  38. PREDNISONE [Suspect]
     Active Substance: PREDNISONE
     Indication: Product used for unknown indication
     Dosage: UNK, ONCE A DAY
     Route: 065
  39. ROSUVASTATIN CALCIUM [Suspect]
     Active Substance: ROSUVASTATIN CALCIUM
     Indication: Product used for unknown indication
     Dosage: 20 MILLIGRAM, ONCE A DAY
     Route: 065
  40. ZOLPIDEM TARTRATE [Suspect]
     Active Substance: ZOLPIDEM TARTRATE
     Indication: Insomnia
     Dosage: UNK
     Route: 065
  41. TELMISARTAN [Suspect]
     Active Substance: TELMISARTAN
     Indication: Product used for unknown indication
     Dosage: UNK, ONCE A DAY ((80/12.5 MG TBL)
     Route: 065
  42. MAGNESIUM ASPARTATE\POTASSIUM ASPARTATE [Suspect]
     Active Substance: MAGNESIUM ASPARTATE\POTASSIUM ASPARTATE
     Indication: Product used for unknown indication
     Dosage: UNK, ONCE A DAY
     Route: 065
  43. GUAIFENESIN [Suspect]
     Active Substance: GUAIFENESIN
     Indication: Product used for unknown indication
     Dosage: UNK
     Route: 065
  44. TRAZODONE [Suspect]
     Active Substance: TRAZODONE HYDROCHLORIDE
     Indication: Product used for unknown indication
     Dosage: UNK
     Route: 065

REACTIONS (37)
  - Pelvic fracture [Recovered/Resolved]
  - Fall [Recovered/Resolved]
  - Fracture [Recovered/Resolved]
  - Head discomfort [Recovering/Resolving]
  - Oxygen saturation decreased [Recovering/Resolving]
  - Apathy [Recovering/Resolving]
  - Nausea [Recovering/Resolving]
  - Confusional state [Recovering/Resolving]
  - Listless [Recovering/Resolving]
  - Liver function test increased [Recovering/Resolving]
  - Hypokalaemia [Recovering/Resolving]
  - Hyponatraemia [Recovering/Resolving]
  - Delirium [Recovering/Resolving]
  - Vertigo [Recovering/Resolving]
  - Urinary retention [Recovering/Resolving]
  - Hypertension [Recovering/Resolving]
  - Cognitive disorder [Recovered/Resolved]
  - Bedridden [Recovered/Resolved]
  - Condition aggravated [Recovered/Resolved]
  - Anxiety [Recovered/Resolved]
  - Drug abuse [Unknown]
  - Overdose [Recovered/Resolved]
  - Intentional product misuse [Recovered/Resolved]
  - Liver function test abnormal [Unknown]
  - Concomitant disease aggravated [Recovering/Resolving]
  - Contusion [Recovered/Resolved]
  - Hypoacusis [Recovered/Resolved]
  - Deafness [Recovered/Resolved]
  - Dizziness [Recovered/Resolved]
  - Poor quality sleep [Recovered/Resolved]
  - Foreign body [Recovered/Resolved]
  - Restlessness [Recovered/Resolved]
  - Self-medication [Recovered/Resolved]
  - Sleep disorder [Recovering/Resolving]
  - Medication error [Recovered/Resolved]
  - Prescription drug used without a prescription [Unknown]
  - Product use issue [Recovered/Resolved]
